FAERS Safety Report 7548616-8 (Version None)
Quarter: 2011Q2

REPORT INFORMATION
  Report Type: 
  Country: None (occurrence: None)
  Receive Date: 20110615
  Receipt Date: 20110527
  Transmission Date: 20111010
  Serious: Yes (Other)
  Sender: FDA-Public Use
  Company Number: DE-EISAI INC-E7273-00231-SPO-DE

PATIENT
  Age: 83 Year
  Sex: Female

DRUGS (1)
  1. TARGRETIN [Suspect]
     Route: 048

REACTIONS (1)
  - CARDIAC FAILURE [None]
